FAERS Safety Report 9557826 (Version 4)
Quarter: 2013Q4

REPORT INFORMATION
  Report Type: Spontaneous
  Country: EG (occurrence: EG)
  Receive Date: 20130926
  Receipt Date: 20131204
  Transmission Date: 20140711
  Serious: Yes (Other)
  Sender: FDA-Public Use
  Company Number: EG-GILEAD-2013-0081927

PATIENT
  Age: 45 Year
  Sex: Male

DRUGS (3)
  1. VIREAD [Suspect]
     Indication: PRODUCT USED FOR UNKNOWN INDICATION
     Dosage: UNK
     Dates: start: 20130131
  2. ALBUMIN [Concomitant]
  3. URSOFALK [Concomitant]
     Indication: DRUG THERAPY

REACTIONS (3)
  - Hepatic cirrhosis [Unknown]
  - Ascites [Unknown]
  - Blood bilirubin increased [Recovered/Resolved]
